FAERS Safety Report 13720280 (Version 1)
Quarter: 2017Q3

REPORT INFORMATION
  Report Type: Spontaneous
  Country: US (occurrence: US)
  Receive Date: 20170706
  Receipt Date: 20170706
  Transmission Date: 20171127
  Serious: No
  Sender: FDA-Public Use
  Company Number: US-GLENMARK PHARMACEUTICALS-2016GMK024281

PATIENT

DRUGS (1)
  1. ADAPALENE. [Suspect]
     Active Substance: ADAPALENE
     Indication: ACNE
     Dosage: UNK, ONCE DAILY ON HER FACE
     Route: 065
     Dates: start: 2005, end: 20160910

REACTIONS (9)
  - Application site dryness [Recovering/Resolving]
  - Application site pain [Recovering/Resolving]
  - Adverse event [Unknown]
  - Application site exfoliation [Recovering/Resolving]
  - Application site irritation [Recovering/Resolving]
  - Application site rash [Recovering/Resolving]
  - Application site vesicles [Recovering/Resolving]
  - Application site pruritus [Recovering/Resolving]
  - Acne [Recovering/Resolving]
